FAERS Safety Report 8874304 (Version 2)
Quarter: 2012Q4

REPORT INFORMATION
  Report Type: Report from Study
  Country: US (occurrence: US)
  Receive Date: 20121023
  Receipt Date: 20121030
  Transmission Date: 20130627
  Serious: Yes (Other)
  Sender: FDA-Public Use
  Company Number: US-ABBOTT-12P-163-0996902-00

PATIENT
  Age: 31 Year
  Sex: Male

DRUGS (1)
  1. HUMIRA [Suspect]
     Indication: SACROILIITIS
     Dates: end: 20120829

REACTIONS (3)
  - Cartilage injury [Recovered/Resolved]
  - Chondropathy [Recovered/Resolved]
  - Off label use [Not Recovered/Not Resolved]
